FAERS Safety Report 6639156-9 (Version None)
Quarter: 2010Q1

REPORT INFORMATION
  Report Type: 
  Country: None (occurrence: None)
  Receive Date: 20100312
  Receipt Date: 20100301
  Transmission Date: 20100710
  Serious: No
  Sender: FDA-Public Use
  Company Number: THYR-1000180

PATIENT
  Age: 44 Year
  Sex: Female
  Weight: 55 kg

DRUGS (2)
  1. THYROGEN [Suspect]
     Indication: DRUG USE FOR UNKNOWN INDICATION
     Dosage: 0.9 MG/ML, ONCE, INTRAMUSCULAR ; 1 ML, ONCE, INTRAMUSCULAR
     Route: 030
     Dates: start: 20090810, end: 20090810
  2. THYROGEN [Suspect]
     Indication: DRUG USE FOR UNKNOWN INDICATION
     Dosage: 0.9 MG/ML, ONCE, INTRAMUSCULAR ; 1 ML, ONCE, INTRAMUSCULAR
     Route: 030
     Dates: start: 20090811, end: 20090811

REACTIONS (3)
  - ERYTHEMA [None]
  - MIGRAINE [None]
  - NERVOUSNESS [None]
